FAERS Safety Report 8372971-2 (Version None)
Quarter: 2012Q2

REPORT INFORMATION
  Report Type: 
  Country: None (occurrence: None)
  Receive Date: 20120521
  Receipt Date: 20111206
  Transmission Date: 20120825
  Serious: No
  Sender: FDA-Public Use
  Company Number: US-ASTRAZENECA-2011SE75912

PATIENT
  Age: 42 Year
  Sex: Male

DRUGS (2)
  1. PRILOSEC OTC [Suspect]
     Route: 048
     Dates: start: 20111122, end: 20111122
  2. PRILOSEC OTC [Suspect]
     Route: 048
     Dates: start: 20111124, end: 20111124

REACTIONS (1)
  - GASTROINTESTINAL PAIN [None]
